FAERS Safety Report 12521808 (Version 1)
Quarter: 2016Q3

REPORT INFORMATION
  Report Type: Spontaneous
  Country: US (occurrence: US)
  Receive Date: 20160701
  Receipt Date: 20160701
  Transmission Date: 20161109
  Serious: Yes (Other)
  Sender: FDA-Public Use
  Company Number: US-BAUSCH-BL-2016-015042

PATIENT
  Age: 68 Year
  Sex: Female

DRUGS (1)
  1. SOOTHE NIGHT TIME [Suspect]
     Active Substance: MINERAL OIL\PETROLATUM
     Indication: DRY EYE
     Dosage: AS DIRECTED INTO BOTH EYES
     Route: 047
     Dates: start: 20160621, end: 20160621

REACTIONS (1)
  - Blindness transient [Recovered/Resolved]

NARRATIVE: CASE EVENT DATE: 20160621
